FAERS Safety Report 8823055 (Version 1)
Quarter: 2012Q4

REPORT INFORMATION
  Report Type: Report from Study
  Country: DE (occurrence: DE)
  Receive Date: 20121003
  Receipt Date: 20121003
  Transmission Date: 20130627
  Serious: Yes (Hospitalization)
  Sender: FDA-Public Use
  Company Number: DE-ROCHE-1137213

PATIENT
  Sex: Female
  Weight: 51 kg

DRUGS (4)
  1. ROACTEMRA [Suspect]
     Indication: RHEUMATOID ARTHRITIS
     Dosage: last dose prior to SAE 01 Jun 2012
     Route: 042
     Dates: start: 20110607
  2. LEFLUNOMIDE [Concomitant]
     Indication: RHEUMATOID ARTHRITIS
     Dosage: last dose prior to SAE 04 Jun 2012
     Route: 048
     Dates: start: 200709
  3. PREDNISOLONE [Concomitant]
     Indication: RHEUMATOID ARTHRITIS
     Dosage: last dose prior to SAE 04 Jun 2012
     Route: 048
     Dates: start: 2006
  4. OXYCODONE [Concomitant]
     Indication: PAIN
     Dosage: last dose prior to SAE 04 Jun 2012
     Route: 048
     Dates: start: 20120604

REACTIONS (1)
  - Panniculitis [Recovered/Resolved]
